FAERS Safety Report 16479373 (Version 1)
Quarter: 2019Q2

REPORT INFORMATION
  Report Type: Spontaneous
  Country: US (occurrence: US)
  Receive Date: 20190626
  Receipt Date: 20190626
  Transmission Date: 20190711
  Serious: Yes (Death)
  Sender: FDA-Public Use
  Company Number: US-CATALYST PHARMACEUTICALS, INC-2019CAT00173

PATIENT
  Age: 66 Year
  Sex: Male
  Weight: 86.17 kg

DRUGS (7)
  1. DEXILANT [Concomitant]
     Active Substance: DEXLANSOPRAZOLE
     Dosage: 60 MG, AS NEEDED
  2. FIRDAPSE [Suspect]
     Active Substance: AMIFAMPRIDINE
     Indication: MYASTHENIC SYNDROME
  3. DEXAMETHASONE. [Concomitant]
     Active Substance: DEXAMETHASONE
  4. HYTRIN [Concomitant]
     Active Substance: TERAZOSIN HYDROCHLORIDE
  5. FIRDAPSE [Suspect]
     Active Substance: AMIFAMPRIDINE
     Indication: PARANEOPLASTIC SYNDROME
     Dosage: UNK, 4X/DAY
     Route: 048
     Dates: start: 20190517, end: 20190522
  6. PROSCAR [Concomitant]
     Active Substance: FINASTERIDE
  7. AMITIZA [Concomitant]
     Active Substance: LUBIPROSTONE

REACTIONS (2)
  - Drug ineffective [Recovered/Resolved]
  - Paraneoplastic syndrome [Fatal]

NARRATIVE: CASE EVENT DATE: 20190517
